FAERS Safety Report 13076365 (Version 6)
Quarter: 2017Q1

REPORT INFORMATION
  Report Type: Report from Study
  Country: None (occurrence: BE)
  Receive Date: 20161230
  Receipt Date: 20170208
  Transmission Date: 20170428
  Serious: Yes (Hospitalization, Other)
  Sender: FDA-Public Use
  Company Number: BE-ABBVIE-16K-013-1774446-00

PATIENT
  Age: 73 Year
  Sex: Male

DRUGS (9)
  1. DUODOPA [Suspect]
     Active Substance: CARBIDOPA\LEVODOPA
     Dosage: AM= 6 ML; CD= 2.4 ML/H DURING 16 HR; ED= 2 ML
     Route: 050
     Dates: start: 20161221
  2. DUODOPA [Suspect]
     Active Substance: CARBIDOPA\LEVODOPA
     Dosage: AM=6ML CD=2.4ML/HR DURING 16HRS ED=2ML
     Route: 050
     Dates: start: 20170112
  3. DUODOPA [Suspect]
     Active Substance: CARBIDOPA\LEVODOPA
     Dosage: AM DOSE=6ML; CD=2.7ML/H DURING 16HRS AND ED=2ML
     Route: 050
     Dates: start: 201610, end: 201611
  4. DUODOPA [Suspect]
     Active Substance: CARBIDOPA\LEVODOPA
     Dosage: CONTINUOUS DOSE DECREASED
     Route: 050
     Dates: start: 201612, end: 20161221
  5. DUODOPA [Suspect]
     Active Substance: CARBIDOPA\LEVODOPA
     Dosage: DOSAGE CONTINUOUSLY MONITORED AND ADJUSTED
     Route: 050
     Dates: start: 20160225, end: 20160920
  6. DUODOPA [Suspect]
     Active Substance: CARBIDOPA\LEVODOPA
     Dosage: AM DOSE=6ML; CD=2.7ML/H DURING 16HRS AND ED=2ML
     Route: 050
     Dates: start: 20160920, end: 201610
  7. DUODOPA [Suspect]
     Active Substance: CARBIDOPA\LEVODOPA
     Dosage: AM= 6 ML; CD= 2.7 ML/H DURING 16 HRS; ED= 2 ML
     Route: 050
     Dates: start: 201611, end: 20161216
  8. DUODOPA [Suspect]
     Active Substance: CARBIDOPA\LEVODOPA
     Dosage: AM=6ML, CD=2.6ML/HR DURING 16HRS, ED=2ML
     Route: 050
     Dates: start: 20161216, end: 201612
  9. DUODOPA [Suspect]
     Active Substance: CARBIDOPA\LEVODOPA
     Indication: PARKINSON^S DISEASE
     Dosage: AM DOSE=8ML; CD=3.7ML/H DURING 16HRS; ED=2ML
     Route: 050
     Dates: start: 20160222, end: 20160225

REACTIONS (16)
  - Hypophagia [Unknown]
  - Sleep disorder [Unknown]
  - Drug dose omission [Unknown]
  - Dyskinesia [Unknown]
  - Device dislocation [Recovered/Resolved]
  - Agitation [Unknown]
  - On and off phenomenon [Unknown]
  - Device connection issue [Unknown]
  - Malaise [Unknown]
  - Device issue [Recovered/Resolved]
  - Medical device removal [Recovered/Resolved]
  - Speech disorder [Unknown]
  - Cognitive disorder [Unknown]
  - Nightmare [Unknown]
  - Incorrect route of drug administration [Recovered/Resolved]
  - Confusional state [Unknown]

NARRATIVE: CASE EVENT DATE: 2016
